FAERS Safety Report 16326467 (Version 3)
Quarter: 2019Q2

REPORT INFORMATION
  Report Type: Spontaneous
  Country: IT (occurrence: IT)
  Receive Date: 20190517
  Receipt Date: 20190612
  Transmission Date: 20190711
  Serious: Yes (Hospitalization)
  Sender: FDA-Public Use
  Company Number: IT-PFIZER INC-2019204648

PATIENT
  Age: 72 Year
  Sex: Male

DRUGS (9)
  1. TRITTICO [Concomitant]
     Active Substance: TRAZODONE HYDROCHLORIDE
     Dosage: UNK
  2. MEDROL [Suspect]
     Active Substance: METHYLPREDNISOLONE
     Dosage: 8 MG, 1X/DAY
     Route: 048
  3. SILODYX [Concomitant]
     Active Substance: SILODOSIN
     Dosage: UNK
  4. DEPAKIN [Concomitant]
     Active Substance: VALPROATE SODIUM
     Dosage: UNK
  5. ACETYLSALICYLIC ACID [Concomitant]
     Active Substance: ASPIRIN
     Dosage: UNK
  6. EBIXA [Concomitant]
     Active Substance: MEMANTINE HYDROCHLORIDE
     Dosage: UNK
  7. GOLTOR [Concomitant]
     Dosage: UNK
  8. RISPERDAL [Suspect]
     Active Substance: RISPERIDONE
     Indication: DEMENTIA ALZHEIMER^S TYPE
     Dosage: UNK
     Route: 048
  9. DALACIN C [CLINDAMYCIN] [Concomitant]
     Dosage: UNK

REACTIONS (2)
  - Blood sodium increased [Not Recovered/Not Resolved]
  - Hyperglycaemia [Not Recovered/Not Resolved]

NARRATIVE: CASE EVENT DATE: 20181231
